FAERS Safety Report 21805693 (Version 2)
Quarter: 2023Q1

REPORT INFORMATION
  Report Type: Spontaneous
  Country: NL (occurrence: None)
  Receive Date: 20230102
  Receipt Date: 20230103
  Transmission Date: 20230417
  Serious: Yes (Other)
  Sender: FDA-Public Use
  Company Number: 2022A420555

PATIENT
  Sex: Female

DRUGS (1)
  1. SYMBICORT [Suspect]
     Active Substance: BUDESONIDE\FORMOTEROL FUMARATE DIHYDRATE
     Indication: Asthma
     Dosage: 200 UG/INHAL, UNKNOWN UNKNOWN
     Route: 055

REACTIONS (3)
  - Exposure during pregnancy [Unknown]
  - Illness [Unknown]
  - Feeling abnormal [Unknown]
